FAERS Safety Report 7401370-2 (Version None)
Quarter: 2011Q2

REPORT INFORMATION
  Report Type: 
  Country: None (occurrence: None)
  Receive Date: 20110407
  Receipt Date: 20110405
  Transmission Date: 20111010
  Serious: Yes (Other)
  Sender: FDA-Public Use
  Company Number: GB-MERCK-1103GBR00138

PATIENT
  Age: 60 Year
  Sex: Male
  Weight: 77 kg

DRUGS (5)
  1. ZOCOR [Suspect]
     Route: 048
     Dates: start: 20101129
  2. OMEPRAZOLE [Concomitant]
     Route: 065
     Dates: start: 20101209
  3. KETOPROFEN [Concomitant]
     Route: 065
     Dates: start: 20110302
  4. ACETAMINOPHEN [Concomitant]
     Route: 065
     Dates: start: 20101129
  5. ATORVASTATIN [Concomitant]
     Route: 065
     Dates: start: 20110316

REACTIONS (1)
  - MOUTH ULCERATION [None]
